FAERS Safety Report 17219578 (Version 1)
Quarter: 2019Q4

REPORT INFORMATION
  Report Type: Spontaneous
  Country: US (occurrence: US)
  Receive Date: 20191231
  Receipt Date: 20191231
  Transmission Date: 20200122
  Serious: No
  Sender: FDA-Public Use
  Company Number: US-HORIZON-DUE-0673-2019

PATIENT
  Age: 52 Year
  Sex: Female

DRUGS (6)
  1. VITAMIN B12 [Concomitant]
     Active Substance: CYANOCOBALAMIN
  2. DUEXIS [Suspect]
     Active Substance: FAMOTIDINE\IBUPROFEN
     Indication: PRODUCT USED FOR UNKNOWN INDICATION
     Dosage: 1 TABLET WITH FOOD TID
  3. LYRICA [Concomitant]
     Active Substance: PREGABALIN
  4. TOPAMAX [Concomitant]
     Active Substance: TOPIRAMATE
  5. OXYCODONE [Concomitant]
     Active Substance: OXYCODONE
  6. METOPROLOL ER [Concomitant]
     Active Substance: METOPROLOL SUCCINATE

REACTIONS (1)
  - Nausea [Not Recovered/Not Resolved]
